FAERS Safety Report 17813087 (Version 3)
Quarter: 2021Q1

REPORT INFORMATION
  Report Type: Spontaneous
  Country: AT (occurrence: AT)
  Receive Date: 20200521
  Receipt Date: 20210329
  Transmission Date: 20210419
  Serious: Yes (Death)
  Sender: FDA-Public Use
  Company Number: AT-PFIZER INC-2020200388

PATIENT
  Age: 70 Year
  Sex: Male

DRUGS (5)
  1. VORICONAZOLE. [Suspect]
     Active Substance: VORICONAZOLE
     Dosage: 6 MG/KG, 2X/DAY
     Route: 042
     Dates: start: 2020
  2. VORICONAZOLE. [Suspect]
     Active Substance: VORICONAZOLE
     Dosage: 4 MG/KG, 2X/DAY
     Route: 042
     Dates: start: 2020
  3. AZITHROMYCIN ANHYDROUS. [Concomitant]
     Active Substance: AZITHROMYCIN ANHYDROUS
     Dosage: 500 MG, 1X/DAY
     Dates: start: 2020
  4. MEROPENEM. [Concomitant]
     Active Substance: MEROPENEM
     Dosage: 1 G, 2X/DAY
     Dates: start: 2020
  5. HYDROXYCHLOROQUINE [Concomitant]
     Active Substance: HYDROXYCHLOROQUINE
     Dosage: 200 MG, 2X/DAY
     Dates: start: 2020

REACTIONS (2)
  - Drug ineffective [Fatal]
  - Multiple organ dysfunction syndrome [Fatal]

NARRATIVE: CASE EVENT DATE: 2020
